FAERS Safety Report 10710401 (Version 1)
Quarter: 2015Q1

REPORT INFORMATION
  Report Type: Spontaneous
  Country: FR (occurrence: None)
  Receive Date: 20150112
  Receipt Date: 20150112
  Transmission Date: 20150721
  Serious: Yes (Life-Threatening, Other)
  Sender: FDA-Public Use
  Company Number: B1017736A

PATIENT
  Age: 2 Day
  Sex: Female

DRUGS (8)
  1. AMPICILLIN [Concomitant]
     Active Substance: AMPICILLIN
  2. TRUVADA (EMTRICITABINE + TENOFOVIR DISOPROXIL FUMARATE) [Concomitant]
  3. TARDYFERON B9 (FERROUS SULPHATE + FOLIC ACID) [Concomitant]
  4. GENTAMICIN. [Concomitant]
     Active Substance: GENTAMICIN
  5. ISENTRESS [Concomitant]
     Active Substance: RALTEGRAVIR POTASSIUM
  6. KARDEGIC [Concomitant]
     Active Substance: ASPIRIN LYSINE
  7. RETROVIR [Suspect]
     Active Substance: ZIDOVUDINE
     Indication: PROPHYLAXIS AGAINST HIV INFECTION
     Dosage: 2D
     Route: 042
     Dates: start: 20140701, end: 20140707
  8. IBUPROFEN (IBUPROFEN) UNKNOWN [Suspect]
     Active Substance: IBUPROFEN
     Indication: PATENT DUCTUS ARTERIOSUS
     Dosage: Z
     Route: 042
     Dates: start: 20140701, end: 20140702

REACTIONS (13)
  - Ascites [None]
  - Anaemia [None]
  - Eosinophilia [None]
  - Premature rupture of membranes [None]
  - Maternal drugs affecting foetus [None]
  - Gastrooesophageal reflux disease [None]
  - Premature baby [None]
  - Staphylococcal sepsis [None]
  - Umbilical cord prolapse [None]
  - Caesarean section [None]
  - Intestinal perforation [None]
  - Abdominal distension [None]
  - Pneumoperitoneum [None]

NARRATIVE: CASE EVENT DATE: 20140703
